FAERS Safety Report 6067364-7 (Version None)
Quarter: 2009Q1

REPORT INFORMATION
  Report Type: 
  Country: None (occurrence: None)
  Receive Date: 20090204
  Receipt Date: 20090204
  Transmission Date: 20090719
  Serious: Yes (Other)
  Sender: FDA-Public Use
  Company Number: None

PATIENT
  Sex: Male
  Weight: 19.5047 kg

DRUGS (4)
  1. RISPERIDONE [Suspect]
     Indication: AFFECT LABILITY
     Dosage: 0.5 MG Q HS PO
     Route: 048
     Dates: start: 20080805, end: 20080827
  2. RISPERIDONE [Suspect]
     Indication: ATTENTION DEFICIT/HYPERACTIVITY DISORDER
     Dosage: 0.5 MG Q HS PO
     Route: 048
     Dates: start: 20080805, end: 20080827
  3. RISPERIDONE [Suspect]
     Indication: AUTISM
     Dosage: 0.5 MG Q HS PO
     Route: 048
     Dates: start: 20080805, end: 20080827
  4. RISPERIDONE [Suspect]
     Indication: OBSESSIVE-COMPULSIVE DISORDER
     Dosage: 0.5 MG Q HS PO
     Route: 048
     Dates: start: 20080805, end: 20080827

REACTIONS (8)
  - ABNORMAL BEHAVIOUR [None]
  - AGITATION [None]
  - DYSKINESIA [None]
  - MIDDLE INSOMNIA [None]
  - NIGHTMARE [None]
  - PRODUCT QUALITY ISSUE [None]
  - PSYCHOMOTOR HYPERACTIVITY [None]
  - SCREAMING [None]
